FAERS Safety Report 8195477-2 (Version None)
Quarter: 2012Q1

REPORT INFORMATION
  Report Type: 
  Country: None (occurrence: None)
  Receive Date: 20120308
  Receipt Date: 20120302
  Transmission Date: 20120608
  Serious: Yes (Other)
  Sender: FDA-Public Use
  Company Number: PHHY2012BR019200

PATIENT
  Age: 53 Year
  Sex: Female

DRUGS (2)
  1. INDAPAMIDE [Suspect]
     Dosage: UNK UKN, UNK
  2. DIOVAN HCT [Suspect]
     Indication: HYPERTENSION
     Dosage: 1 DF,(60/12.5 MG)  A DAY

REACTIONS (16)
  - EYE SWELLING [None]
  - VISION BLURRED [None]
  - CONDITION AGGRAVATED [None]
  - BACK PAIN [None]
  - ARTHRALGIA [None]
  - DERMATITIS BULLOUS [None]
  - DECREASED APPETITE [None]
  - SLEEP DISORDER [None]
  - ANXIETY [None]
  - ABDOMINAL PAIN [None]
  - SWELLING FACE [None]
  - PRURITUS GENERALISED [None]
  - DIZZINESS [None]
  - LIP SWELLING [None]
  - GASTRIC DISORDER [None]
  - NAUSEA [None]
